FAERS Safety Report 24801612 (Version 1)
Quarter: 2025Q1

REPORT INFORMATION
  Report Type: Spontaneous
  Country: US (occurrence: US)
  Receive Date: 20250102
  Receipt Date: 20250102
  Transmission Date: 20250408
  Serious: No
  Sender: PFIZER
  Company Number: US-PFIZER INC-202101028806

PATIENT
  Age: 47 Year
  Sex: Male

DRUGS (3)
  1. TIKOSYN [Suspect]
     Active Substance: DOFETILIDE
  2. TIKOSYN [Suspect]
     Active Substance: DOFETILIDE
     Dosage: TAKE THREE TABLETS TWICE A DAY,375 MCG BID (125 MCG X 3 BID)
  3. TIKOSYN [Suspect]
     Active Substance: DOFETILIDE

REACTIONS (1)
  - Off label use [Unknown]
